FAERS Safety Report 8957279 (Version 1)
Quarter: 2012Q4

REPORT INFORMATION
  Report Type: Spontaneous
  Country: IT (occurrence: None)
  Receive Date: 20121130
  Receipt Date: 20121130
  Transmission Date: 20130627
  Serious: Yes (Hospitalization)
  Sender: FDA-Public Use
  Company Number: 2012MA013671

PATIENT
  Age: 31 Year
  Sex: Female

DRUGS (4)
  1. DIAZEPAM TABLETS USP, 10 MG (PUREPAC) (DIAZEPAM) [Suspect]
     Indication: DRUG USE FOR UNKNOWN INDICATION
     Dosage: 14 GTT; 1x;PO
     Route: 048
     Dates: start: 20121101, end: 20121101
  2. FLUOXETINE [Suspect]
     Route: 048
     Dates: start: 20121101, end: 20121101
  3. ALPRAZOLAM TABLETS USP, 2 MG (PUREPAC) (ALPRAZOLAM) [Suspect]
     Route: 048
     Dates: start: 20121101, end: 20121101
  4. DEPAKIN [Suspect]
     Route: 048
     Dates: start: 20121101, end: 20121101

REACTIONS (3)
  - Sopor [None]
  - Drug abuse [None]
  - Intentional overdose [None]
